FAERS Safety Report 7405740-8 (Version None)
Quarter: 2011Q2

REPORT INFORMATION
  Report Type: 
  Country: None (occurrence: None)
  Receive Date: 20110411
  Receipt Date: 20110405
  Transmission Date: 20111010
  Serious: Yes (Death, Hospitalization, Other)
  Sender: FDA-Public Use
  Company Number: SK-PFIZER INC-2011075015

PATIENT
  Age: 52 Year
  Sex: Female

DRUGS (1)
  1. VORICONAZOLE [Suspect]
     Dosage: 400 MG, UNK
     Dates: start: 20070401

REACTIONS (5)
  - ACUTE LYMPHOCYTIC LEUKAEMIA [None]
  - HEPATOSPLENOMEGALY [None]
  - DYSPNOEA [None]
  - PYREXIA [None]
  - DISEASE PROGRESSION [None]
